FAERS Safety Report 9214237 (Version 1)
Quarter: 2013Q2

REPORT INFORMATION
  Report Type: Spontaneous
  Country: US (occurrence: US)
  Receive Date: 20130405
  Receipt Date: 20130405
  Transmission Date: 20140414
  Serious: Yes (Congenital Anomaly)
  Sender: FDA-Public Use
  Company Number: US-FRI-1000044051

PATIENT
  Age: 11 Month
  Sex: Female

DRUGS (1)
  1. LEXAPRO [Suspect]
     Route: 064

REACTIONS (8)
  - Spina bifida occulta [Unknown]
  - Arnold-Chiari malformation [Unknown]
  - Lipoma [Unknown]
  - Tethered cord syndrome [Unknown]
  - Syringomyelia [Unknown]
  - Spinal disorder [Unknown]
  - Spine malformation [Unknown]
  - Conus medullaris syndrome [Unknown]
